FAERS Safety Report 8799844 (Version 1)
Quarter: 2012Q4

REPORT INFORMATION
  Report Type: Spontaneous
  Country: US (occurrence: None)
  Receive Date: 20120917
  Receipt Date: 20120917
  Transmission Date: 20130627
  Serious: Yes (Hospitalization)
  Sender: FDA-Public Use
  Company Number: AUR-APL-2012-03922

PATIENT
  Age: 43 Year
  Sex: Female

DRUGS (3)
  1. VENLAFAXINE [Suspect]
     Indication: DRUG USE FOR UNKNOWN INDICATION
  2. ZOLPIDEM [Suspect]
     Indication: DRUG USE FOR UNKNOWN INDICATION
  3. ALCOHOL [Suspect]
     Indication: DRUG USE FOR UNKNOWN INDICATION

REACTIONS (6)
  - Mental status changes [None]
  - Heart rate increased [None]
  - Toxicity to various agents [None]
  - Hypotension [None]
  - Intentional overdose [None]
  - Body temperature decreased [None]
